FAERS Safety Report 6942031-3 (Version None)
Quarter: 2010Q3

REPORT INFORMATION
  Report Type: 
  Country: None (occurrence: None)
  Receive Date: 20100816
  Receipt Date: 20100806
  Transmission Date: 20110219
  Serious: Yes (Hospitalization)
  Sender: FDA-Public Use
  Company Number: US-144978

PATIENT
  Sex: Female

DRUGS (1)
  1. WINRHO SDF LIQUID [Suspect]
     Indication: IDIOPATHIC THROMBOCYTOPENIC PURPURA
     Dosage: (50 UG/KG INTRAVENOUS (NOT OTHERWISE SPECIFIED))
     Route: 042

REACTIONS (7)
  - BACK PAIN [None]
  - CHILLS [None]
  - COOMBS TEST POSITIVE [None]
  - HAEMATURIA [None]
  - HAEMOGLOBIN DECREASED [None]
  - INTRAVASCULAR HAEMOLYSIS [None]
  - PLATELET COUNT DECREASED [None]
